FAERS Safety Report 5223729-4 (Version None)
Quarter: 2007Q1

REPORT INFORMATION
  Report Type: 
  Country: None (occurrence: None)
  Receive Date: 20070130
  Receipt Date: 20070117
  Transmission Date: 20070707
  Serious: Yes (Death, Hospitalization)
  Sender: FDA-Public Use
  Company Number: CA-PFIZER INC-2006153300

PATIENT
  Sex: Male

DRUGS (1)
  1. SUTENT [Suspect]
     Indication: METASTATIC RENAL CELL CARCINOMA
     Route: 048
     Dates: start: 20061102, end: 20061115

REACTIONS (4)
  - DISEASE PROGRESSION [None]
  - HIP FRACTURE [None]
  - METASTATIC RENAL CELL CARCINOMA [None]
  - POST PROCEDURAL INFECTION [None]
